FAERS Safety Report 14936975 (Version 1)
Quarter: 2018Q2

REPORT INFORMATION
  Report Type: Report from Study
  Country: US (occurrence: US)
  Receive Date: 20180525
  Receipt Date: 20180525
  Transmission Date: 20180711
  Serious: Yes (Other)
  Sender: FDA-Public Use
  Company Number: US-AMGEN-USASL2018070017

PATIENT
  Age: 60 Year
  Sex: Female

DRUGS (1)
  1. NEUPOGEN [Suspect]
     Active Substance: FILGRASTIM
     Indication: PRODUCT USED FOR UNKNOWN INDICATION
     Dosage: UNK
     Route: 065

REACTIONS (8)
  - Intervertebral disc protrusion [Unknown]
  - Fibromyalgia [Unknown]
  - Wrong technique in product usage process [Unknown]
  - Systemic lupus erythematosus [Unknown]
  - Spondylitis [Unknown]
  - Multiple sclerosis [Unknown]
  - Mobility decreased [Unknown]
  - Optic nerve injury [Unknown]
